FAERS Safety Report 5324802-2 (Version None)
Quarter: 2007Q2

REPORT INFORMATION
  Report Type: 
  Country: None (occurrence: None)
  Receive Date: 20070515
  Receipt Date: 20070507
  Transmission Date: 20071010
  Serious: Yes (Life-Threatening)
  Sender: FDA-Public Use
  Company Number: PHEH2007US07236

PATIENT

DRUGS (3)
  1. RITALIN [Suspect]
     Dosage: 20 MG, UNK
  2. RITALIN [Suspect]
     Dosage: 25 MG, BID
  3. DOLOPHINE HCL [Suspect]
     Dosage: 25 MG, BID

REACTIONS (2)
  - CARDIAC ARREST [None]
  - MEDICATION ERROR [None]
